FAERS Safety Report 8143498-8 (Version None)
Quarter: 2012Q1

REPORT INFORMATION
  Report Type: 
  Country: None (occurrence: None)
  Receive Date: 20120217
  Receipt Date: 20120207
  Transmission Date: 20120608
  Serious: Yes (Life-Threatening, Other)
  Sender: FDA-Public Use
  Company Number: JP-BRISTOL-MYERS SQUIBB COMPANY-16376105

PATIENT
  Age: 70 Year
  Sex: Male
  Weight: 43 kg

DRUGS (3)
  1. ABILIFY [Suspect]
     Indication: SCHIZOPHRENIA
     Dosage: 1DF=6-12MG 27OCT10-6JAN11 INTERR 6JAN11 RESUME 28JAN11 LAST DOSE 21DEC11
     Route: 048
     Dates: start: 20101027, end: 20111222
  2. LONASEN [Concomitant]
     Dosage: TABS
     Dates: start: 20110304
  3. SEROQUEL [Concomitant]
     Dosage: TABS
     Dates: start: 20111007

REACTIONS (3)
  - NEPHROTIC SYNDROME [None]
  - PNEUMONIA [None]
  - DYSPHAGIA [None]
